FAERS Safety Report 5831481-4 (Version None)
Quarter: 2008Q3

REPORT INFORMATION
  Report Type: 
  Country: None (occurrence: None)
  Receive Date: 20080801
  Receipt Date: 20080722
  Transmission Date: 20090109
  Serious: Yes (Hospitalization, Other)
  Sender: FDA-Public Use
  Company Number: US-ABBOTT-03P-163-0237813-00

PATIENT
  Sex: Female
  Weight: 62.198 kg

DRUGS (20)
  1. SYNTHROID [Suspect]
     Indication: HYPOTHYROIDISM
     Route: 048
     Dates: start: 19880101, end: 19880101
  2. SYNTHROID [Suspect]
     Route: 048
     Dates: start: 19880101, end: 19880101
  3. SYNTHROID [Suspect]
     Route: 048
     Dates: start: 19880101, end: 20070201
  4. SYNTHROID [Suspect]
     Route: 048
     Dates: start: 20070201, end: 20070201
  5. SYNTHROID [Suspect]
     Route: 048
     Dates: start: 20070201, end: 20080717
  6. SYNTHROID [Suspect]
     Route: 048
     Dates: start: 20080718
  7. PROPRANOLOL [Interacting]
     Indication: MIGRAINE
     Route: 048
     Dates: start: 19780101, end: 19960101
  8. PROPRANOLOL [Interacting]
     Route: 048
     Dates: start: 19960101, end: 20030901
  9. PROPRANOLOL [Interacting]
     Route: 048
     Dates: start: 20030901, end: 20061201
  10. PROPRANOLOL [Interacting]
     Route: 048
     Dates: start: 20061201
  11. RANITIDINE HYDROCHLORIDE [Concomitant]
     Indication: DRUG USE FOR UNKNOWN INDICATION
     Dosage: 300MG PER DAY, 150MG TWICE PER DAY
     Route: 048
     Dates: start: 20030912
  12. TRAMADOL HCL [Concomitant]
     Indication: ANALGESIA
     Route: 048
     Dates: start: 20010101
  13. OXYCODONE HCL [Concomitant]
     Indication: PAIN
     Dosage: 20MG DAILY AS NEEDED
     Route: 048
     Dates: start: 20050101
  14. LIDOPATCH [Concomitant]
     Indication: MUSCLE SPASMS
     Route: 061
     Dates: start: 20080201
  15. ALPRAZOLAM [Concomitant]
     Indication: MUSCLE SPASMS
     Route: 048
     Dates: start: 19960101
  16. FLEXIMIN COMPLETE MAX STRENGTH [Concomitant]
     Indication: SUPPLEMENTATION THERAPY
     Dosage: TWO DAILY, ONE IN AM AND ONE IN PM
     Route: 048
     Dates: start: 20030101
  17. ASCORBIC ACID [Concomitant]
     Indication: CAPILLARY DISORDER
     Route: 048
  18. CALCIUM CARBONATE [Concomitant]
     Indication: OSTEOPENIA
     Route: 048
     Dates: start: 20080601
  19. LINUM USITATISSIMUM SEED OIL [Concomitant]
     Indication: SUPPLEMENTATION THERAPY
     Dosage: UP TO 2400MG PER DAY, 1200MG 1-2 PER DAY
     Route: 048
     Dates: start: 20060101
  20. RED YEAST RICE [Concomitant]
     Indication: SUPPLEMENTATION THERAPY
     Dosage: 1200-2400 MG DAILY, 600MG 2-4 PER DAY
     Route: 048
     Dates: start: 20060101

REACTIONS (20)
  - ABASIA [None]
  - ALOPECIA [None]
  - APPLICATION SITE HAEMATOMA [None]
  - ASTHENIA [None]
  - BLOOD CHOLESTEROL INCREASED [None]
  - CARDIAC FAILURE CONGESTIVE [None]
  - CHEST PAIN [None]
  - CORONARY ARTERY OCCLUSION [None]
  - COUGH [None]
  - DRUG INTERACTION [None]
  - FALL [None]
  - FEELING ABNORMAL [None]
  - HEART RATE IRREGULAR [None]
  - IMPAIRED HEALING [None]
  - MIGRAINE [None]
  - MOVEMENT DISORDER [None]
  - OSTEOPENIA [None]
  - PARALYSIS [None]
  - RHABDOMYOLYSIS [None]
  - SYNCOPE [None]
